FAERS Safety Report 7367898-9 (Version None)
Quarter: 2011Q1

REPORT INFORMATION
  Report Type: 
  Country: None (occurrence: None)
  Receive Date: 20110322
  Receipt Date: 20110317
  Transmission Date: 20110831
  Serious: Yes (Other)
  Sender: FDA-Public Use
  Company Number: US-MERCK-1009USA00403

PATIENT
  Age: 61 Year
  Sex: Male
  Weight: 109 kg

DRUGS (9)
  1. GLYBURIDE [Concomitant]
     Indication: TYPE 2 DIABETES MELLITUS
     Route: 065
  2. CALCIUM (UNSPECIFIED) [Concomitant]
     Route: 065
  3. FOSAMAX [Suspect]
     Indication: OSTEOPOROSIS PROPHYLAXIS
     Route: 048
     Dates: start: 20050101, end: 20090331
  4. FOSAMAX [Suspect]
     Indication: PROSTATE CANCER
     Route: 048
     Dates: start: 20050101, end: 20090331
  5. FOSAMAX [Suspect]
     Route: 048
     Dates: start: 20050801, end: 20090301
  6. ASPIRIN [Concomitant]
     Route: 065
  7. FOSAMAX [Suspect]
     Route: 048
     Dates: start: 20050801, end: 20090301
  8. AMLODIPINE [Concomitant]
     Indication: HYPERTENSION
     Route: 065
  9. VITAMINS (UNSPECIFIED) [Concomitant]
     Route: 065

REACTIONS (37)
  - DRY THROAT [None]
  - PULMONARY GRANULOMA [None]
  - POOR DENTAL CONDITION [None]
  - ORAL TORUS [None]
  - VASCULAR CALCIFICATION [None]
  - INFECTION [None]
  - OSTEONECROSIS OF JAW [None]
  - AORTIC DILATATION [None]
  - SLEEP APNOEA SYNDROME [None]
  - VOMITING [None]
  - RENAL CYST [None]
  - HIATUS HERNIA [None]
  - INCREASED TENDENCY TO BRUISE [None]
  - DEAFNESS NEUROSENSORY [None]
  - BRONCHITIS [None]
  - PHARYNGEAL LESION [None]
  - OSTEOARTHRITIS [None]
  - NEUROENDOCRINE CARCINOMA [None]
  - DYSPNOEA [None]
  - WEIGHT DECREASED [None]
  - BURSITIS [None]
  - THYROID NEOPLASM [None]
  - SWOLLEN TONGUE [None]
  - DYSPHAGIA [None]
  - LARYNGEAL CANCER [None]
  - DENTAL FISTULA [None]
  - DIZZINESS POSTURAL [None]
  - IMPAIRED HEALING [None]
  - ODYNOPHAGIA [None]
  - OROPHARYNGEAL PAIN [None]
  - HEPATIC CYST [None]
  - ACCIDENTAL EXPOSURE [None]
  - DRUG HYPERSENSITIVITY [None]
  - NAUSEA [None]
  - TOOTH DISORDER [None]
  - DYSPHONIA [None]
  - IMMUNE SYSTEM DISORDER [None]
